FAERS Safety Report 6484074-2 (Version None)
Quarter: 2009Q4

REPORT INFORMATION
  Report Type: 
  Country: None (occurrence: None)
  Receive Date: 20091208
  Receipt Date: 20091208
  Transmission Date: 20100525
  Serious: Yes (Other)
  Sender: FDA-Public Use
  Company Number: None

PATIENT
  Sex: Female
  Weight: 90.7194 kg

DRUGS (1)
  1. ZYRTEC [Suspect]

REACTIONS (17)
  - BONE PAIN [None]
  - DEPRESSION [None]
  - EXERCISE TOLERANCE DECREASED [None]
  - FATIGUE [None]
  - FEAR [None]
  - FIBROMYALGIA [None]
  - FORMICATION [None]
  - HYPERSENSITIVITY [None]
  - MYALGIA [None]
  - NERVOUS SYSTEM DISORDER [None]
  - PAIN [None]
  - PRODUCT LABEL ISSUE [None]
  - PRURITUS [None]
  - RASH [None]
  - URTICARIA [None]
  - WEIGHT INCREASED [None]
  - WITHDRAWAL SYNDROME [None]
